FAERS Safety Report 23932106 (Version 1)
Quarter: 2024Q2

REPORT INFORMATION
  Report Type: Spontaneous
  Country: SE (occurrence: SE)
  Receive Date: 20240603
  Receipt Date: 20240603
  Transmission Date: 20240716
  Serious: Yes (Other)
  Sender: FDA-Public Use
  Company Number: None

PATIENT
  Age: 92 Year
  Sex: Male

DRUGS (10)
  1. LEVETIRACETAM [Suspect]
     Active Substance: LEVETIRACETAM
     Indication: Seizure
     Dates: start: 202404
  2. SODIUM PICOSULFATE [Concomitant]
     Active Substance: SODIUM PICOSULFATE
  3. ACETAMINOPHEN [Concomitant]
     Active Substance: ACETAMINOPHEN
  4. HERBALS\KARAYA GUM [Concomitant]
     Active Substance: HERBALS\KARAYA GUM
  5. NITROLINGUAL [Concomitant]
     Active Substance: NITROGLYCERIN
     Dosage: STRENGTH:  GLYCERYL TRINITRATE- 0.4 MG
  6. MOVICOL [Concomitant]
     Active Substance: POLYETHYLENE GLYCOL 3350\POTASSIUM CHLORIDE\SODIUM BICARBONATE\SODIUM CHLORIDE
  7. LACTULOSE [Concomitant]
     Active Substance: LACTULOSE
  8. FINASTERIDE [Concomitant]
     Active Substance: FINASTERIDE
     Dosage: STRENGTH: FINASTERIDE 5 MG
  9. ALFUZOSIN [Concomitant]
     Active Substance: ALFUZOSIN
  10. EMPAGLIFLOZIN [Concomitant]
     Active Substance: EMPAGLIFLOZIN
     Dosage: STRENGTH: EMPAGLIFLOZIN 10 MG

REACTIONS (1)
  - Hallucination, visual [Recovered/Resolved]

NARRATIVE: CASE EVENT DATE: 20240430
